FAERS Safety Report 4972242-8 (Version None)
Quarter: 2006Q2

REPORT INFORMATION
  Report Type: 
  Country: None (occurrence: None)
  Receive Date: 20060413
  Receipt Date: 20060406
  Transmission Date: 20061013
  Serious: Yes (Other)
  Sender: FDA-Public Use
  Company Number: PHEH2006US04581

PATIENT
  Sex: Male

DRUGS (2)
  1. TRILEPTAL [Suspect]
     Dosage: UNK, BID
     Dates: start: 20030101
  2. CEFZIL [Suspect]

REACTIONS (2)
  - CONVULSION [None]
  - DRUG INTERACTION INHIBITION [None]
